FAERS Safety Report 8480336-8 (Version None)
Quarter: 2012Q2

REPORT INFORMATION
  Report Type: 
  Country: None (occurrence: None)
  Receive Date: 20120630
  Receipt Date: 20120620
  Transmission Date: 20120825
  Serious: Yes (Hospitalization)
  Sender: FDA-Public Use
  Company Number: AU-TEVA-344465ISR

PATIENT
  Sex: Female

DRUGS (6)
  1. MIRTAZAPINE [Concomitant]
  2. LEVOTHYROXINE SODIUM [Concomitant]
  3. CONDILOX [Concomitant]
  4. COPAXONE [Suspect]
     Indication: MULTIPLE SCLEROSIS
     Route: 058
     Dates: start: 20120612
  5. DIGOXIN [Concomitant]
  6. VITAMIN D [Concomitant]

REACTIONS (4)
  - ASTHMA [None]
  - LOWER RESPIRATORY TRACT INFECTION [None]
  - NASOPHARYNGITIS [None]
  - DYSPNOEA [None]
